FAERS Safety Report 9209560 (Version 1)
Quarter: 2013Q2

REPORT INFORMATION
  Report Type: Spontaneous
  Country: US (occurrence: None)
  Receive Date: 20130403
  Receipt Date: 20130403
  Transmission Date: 20140414
  Serious: No
  Sender: FDA-Public Use
  Company Number: None

PATIENT
  Sex: Female
  Weight: 81.65 kg

DRUGS (1)
  1. PANTOPRAZOLE SODIUM [Suspect]
     Route: 048
     Dates: start: 201211, end: 201303

REACTIONS (10)
  - Chills [None]
  - Pyrexia [None]
  - Oropharyngeal pain [None]
  - Local swelling [None]
  - Joint swelling [None]
  - Joint swelling [None]
  - Local swelling [None]
  - Nasal congestion [None]
  - Upper respiratory tract infection [None]
  - Arthralgia [None]
